FAERS Safety Report 4619567-3 (Version None)
Quarter: 2005Q1

REPORT INFORMATION
  Report Type: 
  Country: None (occurrence: None)
  Receive Date: 20050318
  Receipt Date: 20050318
  Transmission Date: 20050727
  Serious: Yes (Hospitalization)
  Sender: FDA-Public Use
  Company Number: None

PATIENT
  Sex: Male
  Weight: 79.3795 kg

DRUGS (6)
  1. ACCUPRIL [Suspect]
     Indication: HYPERTENSION
     Dosage: 20 MG PO QD
     Route: 048
  2. PLAVIX [Concomitant]
  3. TOPROL-XL [Concomitant]
  4. ZOCOR [Concomitant]
  5. ASPIRIN [Concomitant]
  6. ZYPREXA [Concomitant]

REACTIONS (5)
  - DIZZINESS [None]
  - HYPOTENSION [None]
  - HYPOVOLAEMIA [None]
  - RENAL FAILURE ACUTE [None]
  - SYNCOPE [None]
